FAERS Safety Report 8154040-X (Version None)
Quarter: 2012Q1

REPORT INFORMATION
  Report Type: 
  Country: None (occurrence: None)
  Receive Date: 20120221
  Receipt Date: 20120221
  Transmission Date: 20120608
  Serious: Yes (Other)
  Sender: FDA-Public Use
  Company Number: None

PATIENT
  Sex: Female
  Weight: 72.574 kg

DRUGS (1)
  1. ENOXAPARIN SODIUM [Suspect]
     Indication: DEEP VEIN THROMBOSIS
     Dosage: 0.4ML
     Route: 058
     Dates: start: 20110919, end: 20111219

REACTIONS (11)
  - ASTHENIA [None]
  - URINE OUTPUT DECREASED [None]
  - MUSCULOSKELETAL DISORDER [None]
  - RENAL PAIN [None]
  - NAUSEA [None]
  - ABNORMAL DREAMS [None]
  - CHILLS [None]
  - DYSURIA [None]
  - POLLAKIURIA [None]
  - HOT FLUSH [None]
  - FEELING ABNORMAL [None]
